FAERS Safety Report 14574302 (Version 4)
Quarter: 2018Q2

REPORT INFORMATION
  Report Type: Spontaneous
  Country: JP (occurrence: JP)
  Receive Date: 20180226
  Receipt Date: 20180418
  Transmission Date: 20180711
  Serious: Yes (Death, Life-Threatening, Hospitalization, Other)
  Sender: FDA-Public Use
  Company Number: JP-BAUSCH-BL-2018-005024

PATIENT
  Age: 66 Year
  Sex: Female

DRUGS (8)
  1. CEFTRIAXONE. [Concomitant]
     Active Substance: CEFTRIAXONE
     Indication: PELVIC ABSCESS
  2. PIPERACILLIN/TAZOBACTAM [Concomitant]
     Active Substance: PIPERACILLIN SODIUM\TAZOBACTAM SODIUM
     Indication: PRODUCT USED FOR UNKNOWN INDICATION
  3. LEUCOVORIN. [Concomitant]
     Active Substance: LEUCOVORIN
     Indication: RECTAL CANCER
  4. METRONIDAZOLE. [Suspect]
     Active Substance: METRONIDAZOLE
     Indication: PELVIC ABSCESS
     Dosage: ON DAY 7
     Route: 065
  5. FLUOROURACIL. [Suspect]
     Active Substance: FLUOROURACIL
     Indication: RECTAL CANCER
     Dosage: 530 MG BOLUS (400 MG/M2) FOLLOWED BY 3200 MG OVER 46 HOURS (2400 MG/M2; EVERY CYCLE)
     Route: 040
  6. METRONIDAZOLE. [Suspect]
     Active Substance: METRONIDAZOLE
     Indication: HELICOBACTER INFECTION
  7. FLUOROURACIL. [Suspect]
     Active Substance: FLUOROURACIL
     Dosage: INTRAVENOUS INFUSION, EVERY CYCLE
     Route: 042
  8. OXALIPLATIN. [Concomitant]
     Active Substance: OXALIPLATIN
     Indication: RECTAL CANCER

REACTIONS (3)
  - Toxicity to various agents [Fatal]
  - Toxic leukoencephalopathy [Fatal]
  - Coma [Fatal]
